FAERS Safety Report 6396579-3 (Version None)
Quarter: 2009Q4

REPORT INFORMATION
  Report Type: 
  Country: None (occurrence: None)
  Receive Date: 20091012
  Receipt Date: 20091002
  Transmission Date: 20100525
  Serious: Yes (Hospitalization)
  Sender: FDA-Public Use
  Company Number: BE-ABBOTT-09P-013-0600294-00

PATIENT
  Sex: Female

DRUGS (11)
  1. HUMIRA [Suspect]
     Indication: RHEUMATOID ARTHRITIS
     Dates: start: 20060101
  2. ALDACTAZIDE [Concomitant]
     Indication: DRUG USE FOR UNKNOWN INDICATION
  3. MEDROL [Concomitant]
     Indication: DRUG USE FOR UNKNOWN INDICATION
  4. LEDERTREXATE [Concomitant]
     Indication: DRUG USE FOR UNKNOWN INDICATION
  5. FOLIC ACID [Concomitant]
     Indication: DRUG USE FOR UNKNOWN INDICATION
  6. NOVONORM [Concomitant]
     Indication: DRUG USE FOR UNKNOWN INDICATION
  7. RENITEC [Concomitant]
     Indication: DRUG USE FOR UNKNOWN INDICATION
     Dosage: 5 MG - 0.5/DAY (2.5 MG DAILY DOSE)
  8. CACIT D3 [Concomitant]
     Indication: DRUG USE FOR UNKNOWN INDICATION
  9. LYRICA [Concomitant]
     Indication: DRUG USE FOR UNKNOWN INDICATION
  10. MOBIC [Concomitant]
     Indication: DRUG USE FOR UNKNOWN INDICATION
  11. OMEPRAZOLE [Concomitant]
     Indication: DRUG USE FOR UNKNOWN INDICATION

REACTIONS (1)
  - WOUND [None]
